FAERS Safety Report 4356424-4 (Version None)
Quarter: 2004Q2

REPORT INFORMATION
  Report Type: 
  Country: None (occurrence: None)
  Receive Date: 20040510
  Receipt Date: 20040510
  Transmission Date: 20050107
  Serious: Yes (Hospitalization)
  Sender: FDA-Public Use
  Company Number: None

PATIENT
  Age: 26 Year
  Sex: Male

DRUGS (3)
  1. OLANZAPINE [Suspect]
     Indication: SCHIZOPHRENIA
     Dosage: 40 MG DAILY PO
     Route: 048
     Dates: start: 20040401, end: 20040426
  2. RISPERIDONE [Concomitant]
  3. BENZTROPINE MESYLATE [Concomitant]

REACTIONS (3)
  - HYPERGLYCAEMIA [None]
  - MENTAL STATUS CHANGES [None]
  - METABOLIC DISORDER [None]
